FAERS Safety Report 10516699 (Version 1)
Quarter: 2014Q4

REPORT INFORMATION
  Report Type: Spontaneous
  Country: US (occurrence: None)
  Receive Date: 20141003
  Receipt Date: 20141003
  Transmission Date: 20150528
  Serious: Yes (Disabling, Other)
  Sender: FDA-Public Use
  Company Number: 1354296

PATIENT
  Age: 64 Year
  Sex: Male
  Weight: 87.54 kg

DRUGS (5)
  1. IBUPROFEN (IBUPROFEN) [Concomitant]
     Active Substance: IBUPROFEN
  2. OMEPRAZOLE (OMEPRAZOLE) [Concomitant]
     Active Substance: OMEPRAZOLE
  3. RIBAVIRIN. [Suspect]
     Active Substance: RIBAVIRIN
     Indication: HEPATITIS C
     Dosage: (600 MG 2 IN 1 D
     Route: 048
  4. PEGASYS [Suspect]
     Active Substance: PEGINTERFERON ALFA-2A
     Indication: CHRONIC HEPATITIS C
     Dosage: 1 IN 1 WK
     Route: 058
     Dates: start: 20140124
  5. SOVALDI [Suspect]
     Active Substance: SOFOSBUVIR
     Indication: HEPATITIS C
     Dosage: 400 MG 1 IN 1 D
     Route: 048

REACTIONS (8)
  - Depression [None]
  - Headache [None]
  - Red blood cell count decreased [None]
  - Rash [None]
  - White blood cell count decreased [None]
  - Anxiety [None]
  - Influenza like illness [None]
  - Insomnia [None]

NARRATIVE: CASE EVENT DATE: 20140131
